FAERS Safety Report 23182592 (Version 1)
Quarter: 2023Q4

REPORT INFORMATION
  Report Type: Spontaneous
  Country: CN (occurrence: CN)
  Receive Date: 20231114
  Receipt Date: 20231114
  Transmission Date: 20240109
  Serious: Yes (Hospitalization)
  Sender: FDA-Public Use
  Company Number: CN-PFIZER INC-PV202300184935

PATIENT
  Age: 66 Year
  Sex: Male
  Weight: 84 kg

DRUGS (3)
  1. CYTARABINE [Suspect]
     Active Substance: CYTARABINE
     Indication: Acute myeloid leukaemia
     Dosage: 1.5 G, 2X/DAY
     Route: 041
     Dates: start: 20231011, end: 20231013
  2. VITAMIN B6 [Concomitant]
     Active Substance: PYRIDOXINE HYDROCHLORIDE
     Indication: Acute myeloid leukaemia
     Dosage: 200 MG, 1X/DAY
     Route: 041
     Dates: start: 20231011, end: 20231013
  3. VITAMIN C [Concomitant]
     Active Substance: ASCORBIC ACID
     Indication: Acute myeloid leukaemia
     Dosage: 1 G, 1X/DAY
     Route: 041
     Dates: start: 20231011, end: 20231013

REACTIONS (5)
  - Myelosuppression [Recovering/Resolving]
  - Haemorrhage [Unknown]
  - Mental fatigue [Unknown]
  - Asthenia [Unknown]
  - Infection [Unknown]

NARRATIVE: CASE EVENT DATE: 20231020
